FAERS Safety Report 9849524 (Version 1)
Quarter: 2014Q1

REPORT INFORMATION
  Report Type: Spontaneous
  Country: US (occurrence: None)
  Receive Date: 20140124
  Receipt Date: 20140124
  Transmission Date: 20141002
  Serious: Yes (Disabling)
  Sender: FDA-Public Use
  Company Number: None

PATIENT
  Age: 68 Year
  Sex: Male
  Weight: 96.62 kg

DRUGS (6)
  1. RISPERDAL [Suspect]
     Indication: ABNORMAL BEHAVIOUR
     Dates: start: 1993
  2. CENTRUM SILVER [Suspect]
  3. LAMOTRIGINE [Suspect]
  4. VITAMIN D3 [Concomitant]
  5. BRIMONIDIE EYEDROPS [Concomitant]
  6. ALLOPURINOL [Concomitant]

REACTIONS (7)
  - Eye movement disorder [None]
  - Bruxism [None]
  - Balance disorder [None]
  - Eye movement disorder [None]
  - Blepharospasm [None]
  - Sexual dysfunction [None]
  - Impaired driving ability [None]
